FAERS Safety Report 6569271-X (Version None)
Quarter: 2010Q1

REPORT INFORMATION
  Report Type: 
  Country: None (occurrence: None)
  Receive Date: 20100201
  Receipt Date: 20100201
  Transmission Date: 20100710
  Serious: No
  Sender: FDA-Public Use
  Company Number: None

PATIENT
  Sex: Female
  Weight: 96.6162 kg

DRUGS (1)
  1. PHENTERMINE [Suspect]
     Indication: OVERWEIGHT
     Dosage: 30 1 TAB D ORAL
     Route: 048

REACTIONS (1)
  - NO ADVERSE EVENT [None]
